FAERS Safety Report 15558869 (Version 2)
Quarter: 2018Q4

REPORT INFORMATION
  Report Type: Spontaneous
  Country: AU (occurrence: AU)
  Receive Date: 20181029
  Receipt Date: 20181208
  Transmission Date: 20190205
  Serious: Yes (Other)
  Sender: FDA-Public Use
  Company Number: AU-ROCHE-2203803

PATIENT
  Sex: Male

DRUGS (1)
  1. OCREVUS [Suspect]
     Active Substance: OCRELIZUMAB
     Indication: RELAPSING MULTIPLE SCLEROSIS
     Dosage: SECOND DOSE ON 02/OCT/2018
     Route: 065

REACTIONS (4)
  - Muscle spasms [Recovered/Resolved]
  - Tremor [Unknown]
  - Dysphagia [Unknown]
  - Dry mouth [Unknown]
